FAERS Safety Report 11541518 (Version 2)
Quarter: 2015Q3

REPORT INFORMATION
  Report Type: Report from Study
  Country: CZ (occurrence: CZ)
  Receive Date: 20150923
  Receipt Date: 20150929
  Transmission Date: 20151125
  Serious: Yes (Hospitalization)
  Sender: FDA-Public Use
  Company Number: CZ-BAYER-2015-421197

PATIENT
  Age: 40 Year
  Sex: Female
  Weight: 55 kg

DRUGS (1)
  1. MIRENA [Suspect]
     Active Substance: LEVONORGESTREL
     Indication: CONTRACEPTION
     Dosage: 20 MCG/24HR, CONT
     Route: 015
     Dates: start: 20150206, end: 20150609

REACTIONS (8)
  - Endometritis [Recovered/Resolved]
  - Salpingo-oophoritis [Recovered/Resolved]
  - Noninfective oophoritis [None]
  - Abdominal adhesions [None]
  - Pelvic inflammatory disease [None]
  - Ovarian cyst [None]
  - Parametritis [None]
  - Abdominal pain lower [Recovered/Resolved]

NARRATIVE: CASE EVENT DATE: 201506
